FAERS Safety Report 10871382 (Version 1)
Quarter: 2015Q1

REPORT INFORMATION
  Report Type: Spontaneous
  Country: FR (occurrence: None)
  Receive Date: 20150223
  Receipt Date: 20150223
  Transmission Date: 20150721
  Serious: Yes (Hospitalization)
  Sender: FDA-Public Use
  Company Number: IPC201502-000093

PATIENT
  Age: 5 Year
  Sex: Male
  Weight: 21 kg

DRUGS (1)
  1. TRAMADOL (TRAMADOL) (TRAMADOL) [Suspect]
     Active Substance: TRAMADOL
     Indication: PAIN
     Dosage: 8 DROPS
     Route: 048

REACTIONS (6)
  - Lethargy [None]
  - Coma [None]
  - Toxicity to various agents [None]
  - Apnoea [None]
  - Respiratory depression [None]
  - Miosis [None]
